FAERS Safety Report 8362167-2 (Version None)
Quarter: 2012Q2

REPORT INFORMATION
  Report Type: 
  Country: None (occurrence: None)
  Receive Date: 20120515
  Receipt Date: 20120510
  Transmission Date: 20120825
  Serious: Yes (Hospitalization)
  Sender: FDA-Public Use
  Company Number: PHHY2012CH040345

PATIENT
  Age: 50 Year
  Sex: Female

DRUGS (7)
  1. OMEPRAZOLE [Concomitant]
     Dosage: 40 MG, UNK
     Route: 048
     Dates: start: 20111222
  2. CLOZAPINE [Suspect]
     Dosage: 700 MG, UNK
     Dates: start: 20120301, end: 20120324
  3. CLOZAPINE [Suspect]
     Indication: SCHIZOPHRENIA
     Route: 048
     Dates: start: 20111222, end: 20120324
  4. VALIUM [Concomitant]
     Dosage: 10 MG, UNK
     Route: 048
     Dates: start: 20120306
  5. INSULIN 18 IE [Concomitant]
     Route: 058
     Dates: start: 20120107
  6. BILOL [Concomitant]
     Dosage: 2.5 MG, UNK
     Dates: start: 20111222
  7. MARCUMAR [Concomitant]

REACTIONS (2)
  - DYSTONIA [None]
  - PLEUROTHOTONUS [None]
